FAERS Safety Report 18501341 (Version 1)
Quarter: 2020Q4

REPORT INFORMATION
  Report Type: Spontaneous
  Country: DE (occurrence: DE)
  Receive Date: 20201113
  Receipt Date: 20201113
  Transmission Date: 20210114
  Serious: Yes (Hospitalization)
  Sender: FDA-Public Use
  Company Number: DE-TEVA-2020-DE-1847951

PATIENT
  Age: 76 Year
  Sex: Female

DRUGS (9)
  1. METAMIZOL [Concomitant]
     Active Substance: METAMIZOLE SODIUM
     Dosage: 4 GRAM DAILY; 1-1-1-1
     Route: 048
  2. METHOTREXAT [Suspect]
     Active Substance: METHOTREXATE
     Dosage: 15 MG, WEDNESDAYS, AMPOULES
     Route: 058
  3. COLECALCIFEROL [Concomitant]
     Active Substance: CHOLECALCIFEROL
     Dosage: 20,000 IU / MONTH, 1X
     Route: 048
  4. LEVOTHYROXINE SODIUM. [Concomitant]
     Active Substance: LEVOTHYROXINE SODIUM
     Dosage: 100 MICROGRAM DAILY;  1-0-0-0
     Route: 048
  5. ATORVASTATIN [Concomitant]
     Active Substance: ATORVASTATIN
     Dosage: 40 MILLIGRAM DAILY; 0-0-1-0
     Route: 048
  6. TINZAPARIN [Suspect]
     Active Substance: TINZAPARIN
     Dosage: 3500 IU (INTERNATIONAL UNIT) DAILY; AMPOULES, 1-0-0-0
     Route: 058
  7. FOLSAEURE [Concomitant]
     Active Substance: FOLIC ACID
     Dosage: 5 MG, THURSDAYS
     Route: 048
  8. TEBONIN KONZENT 240 MG [Concomitant]
     Dosage: 240 MILLIGRAM DAILY;  1-0-0-0
     Route: 048
  9. ACETYLSALICYLSAEURE [Concomitant]
     Active Substance: ASPIRIN
     Dosage: 100 MILLIGRAM DAILY; 0-1-0-0
     Route: 048

REACTIONS (5)
  - Condition aggravated [Unknown]
  - Abdominal pain [Unknown]
  - Abdominal distension [Unknown]
  - Nausea [Unknown]
  - Ulcer [Unknown]
